FAERS Safety Report 18598416 (Version 1)
Quarter: 2020Q4

REPORT INFORMATION
  Report Type: Spontaneous
  Country: UA (occurrence: UA)
  Receive Date: 20201210
  Receipt Date: 20201210
  Transmission Date: 20210114
  Serious: Yes (Other)
  Sender: FDA-Public Use
  Company Number: UA-TEVA-2020-UA-1854964

PATIENT
  Age: 55 Year
  Sex: Female

DRUGS (1)
  1. SUMAMED [Suspect]
     Active Substance: AZITHROMYCIN ANHYDROUS
     Indication: COVID-19
     Dosage: 500 MILLIGRAM DAILY;
     Route: 065
     Dates: start: 20200817

REACTIONS (6)
  - Loss of consciousness [Unknown]
  - Product use issue [Unknown]
  - Dizziness [Unknown]
  - Panic reaction [Unknown]
  - Off label use [Unknown]
  - Fear [Unknown]

NARRATIVE: CASE EVENT DATE: 2020
